FAERS Safety Report 15327555 (Version 3)
Quarter: 2018Q3

REPORT INFORMATION
  Report Type: Report from Study
  Country: TN (occurrence: TN)
  Receive Date: 20180828
  Receipt Date: 20180830
  Transmission Date: 20181010
  Serious: Yes (Hospitalization)
  Sender: FDA-Public Use
  Company Number: TN-B.I. PHARMACEUTICALS,INC./RIDGEFIELD-2015-BI-02755BI

PATIENT
  Age: 76 Year
  Sex: Male
  Weight: 70 kg

DRUGS (1)
  1. GLIMEPIRIDE. [Suspect]
     Active Substance: GLIMEPIRIDE
     Indication: TYPE 2 DIABETES MELLITUS
     Route: 048
     Dates: start: 20120319, end: 20150103

REACTIONS (4)
  - Intraductal papillary mucinous neoplasm [Not Recovered/Not Resolved]
  - Renal failure [Not Recovered/Not Resolved]
  - Pancreatitis [Recovered/Resolved]
  - Gastrointestinal haemorrhage [Recovered/Resolved]

NARRATIVE: CASE EVENT DATE: 20141229
